FAERS Safety Report 26011320 (Version 3)
Quarter: 2025Q4

REPORT INFORMATION
  Report Type: Report from Study
  Country: CA (occurrence: CA)
  Receive Date: 20251107
  Receipt Date: 20251124
  Transmission Date: 20260117
  Serious: Yes (Hospitalization, Other)
  Sender: TAKEDA
  Company Number: CA-TAKEDA-2025TUS097910

PATIENT
  Age: 63 Year
  Sex: Male

DRUGS (2)
  1. VEDOLIZUMAB [Suspect]
     Active Substance: VEDOLIZUMAB
     Indication: Colitis ulcerative
     Dosage: 300 MILLIGRAM
  2. INDAPAMIDE [Concomitant]
     Active Substance: INDAPAMIDE
     Dosage: UNK

REACTIONS (2)
  - Pneumonia [Recovering/Resolving]
  - Tachycardia [Recovering/Resolving]
